FAERS Safety Report 6543623-6 (Version None)
Quarter: 2010Q1

REPORT INFORMATION
  Report Type: 
  Country: None (occurrence: None)
  Receive Date: 20100120
  Receipt Date: 20100112
  Transmission Date: 20100710
  Serious: Yes (Hospitalization)
  Sender: FDA-Public Use
  Company Number: JP-SP-2009-05459

PATIENT
  Age: 75 Year
  Sex: Male

DRUGS (4)
  1. IMMUCYST [Suspect]
     Indication: BLADDER CANCER
     Route: 043
     Dates: start: 20091021, end: 20091111
  2. LOXOPROFEN SODIUM [Concomitant]
     Dates: start: 20091111, end: 20091116
  3. TEPRENONE [Concomitant]
     Dates: start: 20091111, end: 20091116
  4. CEFPODOXIME PROXETIL [Concomitant]
     Dates: start: 20091111, end: 20091114

REACTIONS (2)
  - DISSEMINATED TUBERCULOSIS [None]
  - DYSPNOEA [None]
